FAERS Safety Report 10927193 (Version 1)
Quarter: 2015Q1

REPORT INFORMATION
  Report Type: Spontaneous
  Country: US (occurrence: None)
  Receive Date: 20150316
  Receipt Date: 20150316
  Transmission Date: 20150721
  Serious: Yes (Other)
  Sender: FDA-Public Use
  Company Number: ADR-2015-00503

PATIENT
  Age: 37 Year
  Sex: Male

DRUGS (3)
  1. LIORESAL [Suspect]
     Active Substance: BACLOFEN
     Indication: MUSCLE SPASTICITY
  2. MORPHINE INTRATHECAL [Suspect]
     Active Substance: MORPHINE
  3. SALINE [Suspect]
     Active Substance: SODIUM CHLORIDE

REACTIONS (6)
  - Asthenia [None]
  - Device breakage [None]
  - Condition aggravated [None]
  - Muscle spasticity [None]
  - Somnolence [None]
  - Device kink [None]
